FAERS Safety Report 7822896-3 (Version None)
Quarter: 2011Q4

REPORT INFORMATION
  Report Type: 
  Country: None (occurrence: None)
  Receive Date: 20111018
  Receipt Date: 20110202
  Transmission Date: 20120403
  Serious: No
  Sender: FDA-Public Use
  Company Number: US-ASTRAZENECA-2011SE05919

PATIENT
  Sex: Male
  Weight: 104.3 kg

DRUGS (6)
  1. HEART MEDICATION BETA BLOCKER [Concomitant]
  2. NORVASC [Concomitant]
  3. WARFARIN SODIUM [Concomitant]
  4. GLAUCOMA EYE DROPS [Concomitant]
  5. SYMBICORT [Suspect]
     Indication: DYSPNOEA
     Route: 055
     Dates: start: 20110115
  6. ZOCOR [Concomitant]

REACTIONS (1)
  - CONSTIPATION [None]
